FAERS Safety Report 25544041 (Version 1)
Quarter: 2025Q3

REPORT INFORMATION
  Report Type: Spontaneous
  Country: US (occurrence: None)
  Receive Date: 20250710
  Receipt Date: 20250710
  Transmission Date: 20251020
  Serious: Yes (Hospitalization)
  Sender: FDA-CTU
  Company Number: None

PATIENT
  Age: 53 Year
  Sex: Female
  Weight: 54.9 kg

DRUGS (20)
  1. AUSTEDO XR [Suspect]
     Active Substance: DEUTETRABENAZINE
     Indication: Tardive dyskinesia
     Dosage: 28 TATABLET(S) DAILY ORAL ?
     Route: 048
     Dates: start: 20250703, end: 20250704
  2. WELLBUTRIN [Suspect]
     Active Substance: BUPROPION HYDROCHLORIDE
  3. LAMICTAL [Suspect]
     Active Substance: LAMOTRIGINE
  4. DEVICE\INSULIN NOS [Concomitant]
     Active Substance: DEVICE\INSULIN NOS
  5. INSULIN NOS [Concomitant]
     Active Substance: INSULIN NOS
  6. SINGULAIR [Concomitant]
     Active Substance: MONTELUKAST SODIUM
  7. LEVOTHYROXINE [Concomitant]
     Active Substance: LEVOTHYROXINE
  8. METHOTREXATE [Concomitant]
     Active Substance: METHOTREXATE
  9. FOLIC ACID [Concomitant]
     Active Substance: FOLIC ACID
  10. PROZAC [Concomitant]
     Active Substance: FLUOXETINE HYDROCHLORIDE
  11. Remoron [Concomitant]
  12. LAMICTAL [Concomitant]
     Active Substance: LAMOTRIGINE
  13. CLONIDINE [Concomitant]
     Active Substance: CLONIDINE
  14. GABAPENTIN [Concomitant]
     Active Substance: GABAPENTIN
  15. ATORVASTATIN [Concomitant]
     Active Substance: ATORVASTATIN
  16. VITAMINS [Concomitant]
     Active Substance: VITAMINS
  17. VITAMIN B COMPLEX [Concomitant]
     Active Substance: CYANOCOBALAMIN\DEXPANTHENOL\NIACINAMIDE\PYRIDOXINE HYDROCHLORIDE\RIBOFLAVIN 5^-PHOSPHATE SODIUM\THIA
  18. VITAMIN C [Concomitant]
     Active Substance: ASCORBIC ACID
  19. PROBIOTICS NOS [Concomitant]
     Active Substance: PROBIOTICS NOS
  20. OMEPRAZOLE [Concomitant]
     Active Substance: OMEPRAZOLE

REACTIONS (5)
  - Fall [None]
  - Head injury [None]
  - Loss of consciousness [None]
  - Paralysis [None]
  - Aphasia [None]

NARRATIVE: CASE EVENT DATE: 20250703
